FAERS Safety Report 8477806-5 (Version None)
Quarter: 2012Q2

REPORT INFORMATION
  Report Type: 
  Country: None (occurrence: None)
  Receive Date: 20120629
  Receipt Date: 20120618
  Transmission Date: 20120825
  Serious: Yes (Death, Other)
  Sender: FDA-Public Use
  Company Number: CA-VERTEX PHARMACEUTICALS INC.-AE-2012-009071

PATIENT
  Sex: Male

DRUGS (1)
  1. INCIVEK [Suspect]
     Indication: HEPATITIS C

REACTIONS (2)
  - CARDIAC FAILURE CONGESTIVE [None]
  - HEPATIC CIRRHOSIS [None]
